FAERS Safety Report 17050713 (Version 1)
Quarter: 2019Q4

REPORT INFORMATION
  Report Type: Spontaneous
  Country: FR (occurrence: FR)
  Receive Date: 20191119
  Receipt Date: 20191119
  Transmission Date: 20200122
  Serious: Yes (Hospitalization)
  Sender: FDA-Public Use
  Company Number: FR-SUN PHARMACEUTICAL INDUSTRIES LTD-2019RR-227984

PATIENT
  Age: 18 Year
  Sex: Male

DRUGS (4)
  1. XEPLION 150 MG, SUSPENSION INJECTABLE A LIBERATION PROLONGEE [Suspect]
     Active Substance: PALIPERIDONE PALMITATE
     Indication: BEHAVIOUR DISORDER
     Dosage: 1 DOSAGE FORM, MONTHLY
     Route: 030
     Dates: start: 20190620, end: 20190918
  2. LOXAPAC 25 MG, COMPRIME PELLICULE [Suspect]
     Active Substance: LOXAPINE SUCCINATE
     Indication: AGITATION
     Dosage: 1 DOSAGE FORM, UNK
     Route: 048
     Dates: start: 201907, end: 20190920
  3. TEGRETOL [Suspect]
     Active Substance: CARBAMAZEPINE
     Indication: PRODUCT USED FOR UNKNOWN INDICATION
     Dosage: 1 DOSAGE FORM, DAILY
     Route: 048
     Dates: start: 201908, end: 20190920
  4. RISPERIDONE. [Suspect]
     Active Substance: RISPERIDONE
     Indication: BEHAVIOUR DISORDER
     Dosage: 2 MILLIGRAM, DAILY
     Route: 048
     Dates: start: 201710, end: 20190920

REACTIONS (1)
  - Drug reaction with eosinophilia and systemic symptoms [Recovering/Resolving]

NARRATIVE: CASE EVENT DATE: 20190917
